FAERS Safety Report 14046232 (Version 1)
Quarter: 2017Q4

REPORT INFORMATION
  Report Type: Report from Study
  Country: None (occurrence: GR)
  Receive Date: 20171005
  Receipt Date: 20171005
  Transmission Date: 20180321
  Serious: Yes (Death, Hospitalization, Other)
  Sender: FDA-Public Use
  Company Number: GR-ABBVIE-17K-066-2120860-00

PATIENT
  Age: 75 Year
  Sex: Female

DRUGS (4)
  1. BELIFAX [Concomitant]
     Indication: PRODUCT USED FOR UNKNOWN INDICATION
     Route: 048
  2. RIVETAL [Concomitant]
     Indication: PRODUCT USED FOR UNKNOWN INDICATION
     Route: 048
  3. FILICINE [Concomitant]
     Indication: ANAEMIA
     Route: 048
  4. DUODOPA [Suspect]
     Active Substance: CARBIDOPA\LEVODOPA
     Indication: PARKINSON^S DISEASE
     Dosage: MORNING DOSE: 8.5 ML;?CONTINUOUS RATE: 1.3 ML/H;?EXTRA DOSE: 1.5 ML
     Route: 050
     Dates: start: 2010, end: 20170731

REACTIONS (3)
  - Nosocomial infection [Not Recovered/Not Resolved]
  - Septic shock [Fatal]
  - Pyrexia [Unknown]

NARRATIVE: CASE EVENT DATE: 2017
